FAERS Safety Report 9234389 (Version 1)
Quarter: 2013Q2

REPORT INFORMATION
  Report Type: Spontaneous
  Country: US (occurrence: US)
  Receive Date: 20130416
  Receipt Date: 20130416
  Transmission Date: 20140414
  Serious: No
  Sender: FDA-Public Use
  Company Number: US-ASTRAZENECA-2013SE20858

PATIENT
  Sex: Female

DRUGS (7)
  1. BRILINTA [Suspect]
     Route: 048
     Dates: start: 20130327
  2. METOPROLOL [Suspect]
     Route: 048
  3. GABAPENTIN [Concomitant]
     Indication: MUSCLE SPASMS
  4. LANTUS [Concomitant]
     Indication: DIABETES MELLITUS
  5. METFORMIN [Concomitant]
  6. DIOVAN [Concomitant]
  7. ISOSORBIDE [Concomitant]

REACTIONS (4)
  - Cardiac disorder [Unknown]
  - Eye disorder [Not Recovered/Not Resolved]
  - Palpitations [Not Recovered/Not Resolved]
  - Dyspnoea [Not Recovered/Not Resolved]
